FAERS Safety Report 18946552 (Version 1)
Quarter: 2021Q1

REPORT INFORMATION
  Report Type: Report from Study
  Country: CN (occurrence: CN)
  Receive Date: 20210226
  Receipt Date: 20210226
  Transmission Date: 20210420
  Serious: Yes (Life-Threatening, Other)
  Sender: FDA-Public Use
  Company Number: CN-ASTRAZENECA-2021A085044

PATIENT
  Age: 56 Year
  Sex: Male

DRUGS (1)
  1. OSIMERTINIB. [Suspect]
     Active Substance: OSIMERTINIB
     Indication: LUNG NEOPLASM MALIGNANT
     Route: 048
     Dates: start: 20200415

REACTIONS (6)
  - Pulmonary embolism [Unknown]
  - Venous thrombosis limb [Unknown]
  - Lymphopenia [Unknown]
  - Headache [Unknown]
  - Fibrin D dimer increased [Unknown]
  - Vision blurred [Unknown]
